FAERS Safety Report 8390287 (Version 2)
Quarter: 2012Q4

REPORT INFORMATION
  Report Type: Report from Study
  Country: US (occurrence: US)
  Receive Date: 20120203
  Receipt Date: 20121227
  Transmission Date: 20130627
  Serious: Yes (Hospitalization)
  Sender: FDA-Public Use
  Company Number: PHHO2010US13546

PATIENT
  Age: 59 Year
  Sex: Female
  Weight: 86.17 kg

DRUGS (4)
  1. ACZ885 [Suspect]
     Indication: OSTEOARTHRITIS
     Dosage: 600 mg, UNK
     Dates: start: 20100706
  2. MULTIVITAMINS [Concomitant]
  3. GLUCOSAMINE [Concomitant]
  4. PRILOSEC [Concomitant]

REACTIONS (3)
  - Cellulitis [Recovered/Resolved]
  - Erythema [Recovered/Resolved]
  - Pruritus [Recovered/Resolved]
